FAERS Safety Report 7624166-5 (Version None)
Quarter: 2011Q3

REPORT INFORMATION
  Report Type: 
  Country: None (occurrence: None)
  Receive Date: 20110720
  Receipt Date: 20110720
  Transmission Date: 20111222
  Serious: Yes (Other)
  Sender: FDA-Public Use
  Company Number: None

PATIENT
  Sex: Male

DRUGS (2)
  1. CONCERTA [Interacting]
  2. FLONASE [Suspect]
     Indication: SINUSITIS
     Dosage: IN BOTH NOSTIRLS
     Dates: start: 20110601, end: 20110603

REACTIONS (1)
  - BALANCE DISORDER [None]
